FAERS Safety Report 6692834-8 (Version None)
Quarter: 2010Q2

REPORT INFORMATION
  Report Type: 
  Country: None (occurrence: None)
  Receive Date: 20100419
  Receipt Date: 20100406
  Transmission Date: 20101027
  Serious: Yes (Other)
  Sender: FDA-Public Use
  Company Number: LEO-2010-00280

PATIENT
  Age: 30 Year
  Sex: Female

DRUGS (1)
  1. TACLONEX [Suspect]
     Dosage: TOPICAL, DURING SEVERAL WEEKS
     Route: 061

REACTIONS (3)
  - ABORTION INDUCED [None]
  - MATERNAL DRUGS AFFECTING FOETUS [None]
  - SEX CHROMOSOME ABNORMALITY [None]
